FAERS Safety Report 5082371-9 (Version None)
Quarter: 2006Q3

REPORT INFORMATION
  Report Type: 
  Country: None (occurrence: None)
  Receive Date: 20060814
  Receipt Date: 20060731
  Transmission Date: 20061208
  Serious: Yes (Hospitalization)
  Sender: FDA-Public Use
  Company Number: 2006-BP-08760RO

PATIENT
  Age: 31 Year
  Sex: Male

DRUGS (9)
  1. LIDOCAINE [Suspect]
     Indication: EPIDURAL ANAESTHESIA
  2. PROPOFOL [Suspect]
     Indication: SEDATION
     Dosage: (50 MG), IV
     Route: 042
  3. METHYLPREDNISOLONE [Suspect]
     Indication: EPIDURAL ANAESTHESIA
     Dosage: (60 MG)
  4. IBUPROFEN [Concomitant]
  5. CYCLOBENZAPRINE (CYCLOBENZAPRINE0 [Concomitant]
  6. TRAMADOL HCL [Concomitant]
  7. NAPROXEN [Concomitant]
  8. DIAZEPAM [Concomitant]
  9. STEROIDS (CORTICOSTERIODS) [Concomitant]

REACTIONS (7)
  - AMNESIA [None]
  - BRAIN HERNIATION [None]
  - CEREBELLAR INFARCTION [None]
  - DIPLOPIA [None]
  - DISTURBANCE IN ATTENTION [None]
  - MENINGITIS [None]
  - POST PROCEDURAL COMPLICATION [None]
